FAERS Safety Report 5993642-3 (Version None)
Quarter: 2008Q4

REPORT INFORMATION
  Report Type: 
  Country: None (occurrence: None)
  Receive Date: 20081212
  Receipt Date: 20081209
  Transmission Date: 20090506
  Serious: Yes (Death, Hospitalization)
  Sender: FDA-Public Use
  Company Number: PHHY2008MY30592

PATIENT
  Sex: Male

DRUGS (2)
  1. GLEEVEC [Suspect]
     Indication: GASTROINTESTINAL STROMAL TUMOUR
     Dosage: 400 MG, UNK
     Dates: start: 20040401
  2. GLEEVEC [Suspect]
     Dosage: 600 MG, UNK
     Route: 048
     Dates: start: 20071201, end: 20080401

REACTIONS (12)
  - ABDOMINAL MASS [None]
  - ASCITES [None]
  - DISEASE PROGRESSION [None]
  - DRUG INEFFECTIVE [None]
  - EATING DISORDER [None]
  - FLUID RETENTION [None]
  - HEPATOMEGALY [None]
  - MALAISE [None]
  - METASTASES TO LIVER [None]
  - METASTASES TO LUNG [None]
  - OEDEMA PERIPHERAL [None]
  - PERFORMANCE STATUS DECREASED [None]
